FAERS Safety Report 9263770 (Version 1)
Quarter: 2013Q2

REPORT INFORMATION
  Report Type: Spontaneous
  Country: BR (occurrence: BR)
  Receive Date: 20130430
  Receipt Date: 20130430
  Transmission Date: 20140414
  Serious: Yes (Hospitalization, Other)
  Sender: FDA-Public Use
  Company Number: PHHY2013BR041881

PATIENT
  Age: 59 Year
  Sex: Female

DRUGS (2)
  1. RITALINA [Suspect]
     Indication: ATTENTION DEFICIT/HYPERACTIVITY DISORDER
     Dosage: 1 DF, 5QD
     Route: 048
  2. CYMBALTA [Concomitant]
     Indication: DEPRESSION
     Dosage: 1 DF, QD
     Route: 048

REACTIONS (6)
  - Renal cancer [Unknown]
  - Alcoholism [Unknown]
  - Shock [Unknown]
  - Therapeutic response unexpected [Unknown]
  - Constipation [Unknown]
  - Vomiting [Unknown]
